FAERS Safety Report 6258140-0 (Version None)
Quarter: 2009Q2

REPORT INFORMATION
  Report Type: 
  Country: None (occurrence: None)
  Receive Date: 20090630
  Receipt Date: 20090330
  Transmission Date: 20091009
  Serious: Yes (Death, Hospitalization)
  Sender: FDA-Public Use
  Company Number: M-09-0298

PATIENT
  Sex: Female

DRUGS (1)
  1. PACERONE [Suspect]
     Dosage: PO
     Route: 048

REACTIONS (1)
  - PULMONARY TOXICITY [None]
